FAERS Safety Report 10654154 (Version 1)
Quarter: 2014Q4

REPORT INFORMATION
  Report Type: Spontaneous
  Country: US (occurrence: US)
  Receive Date: 20141216
  Receipt Date: 20141216
  Transmission Date: 20150529
  Serious: Yes (Other)
  Sender: FDA-Public Use
  Company Number: US-ELI_LILLY_AND_COMPANY-US201412001548

PATIENT
  Sex: Male

DRUGS (2)
  1. CYMBALTA [Suspect]
     Active Substance: DULOXETINE HYDROCHLORIDE
     Indication: DEPRESSION
     Dosage: UNK
     Route: 065
     Dates: start: 201302
  2. CYMBALTA [Suspect]
     Active Substance: DULOXETINE HYDROCHLORIDE
     Indication: PAIN
     Dosage: UNK
     Route: 065
     Dates: start: 2012

REACTIONS (9)
  - Tremor [Unknown]
  - Drug withdrawal syndrome [Unknown]
  - Fall [Unknown]
  - Gait disturbance [Unknown]
  - Formication [Unknown]
  - Disorientation [Unknown]
  - Paraesthesia [Unknown]
  - Drug withdrawal headache [Unknown]
  - Nausea [Unknown]
